FAERS Safety Report 25276236 (Version 1)
Quarter: 2025Q2

REPORT INFORMATION
  Report Type: Spontaneous
  Country: ES (occurrence: ES)
  Receive Date: 20250507
  Receipt Date: 20250507
  Transmission Date: 20250717
  Serious: Yes (Hospitalization)
  Sender: DOUGLAS PHARMACEUTICALS
  Company Number: ES-DOUGLAS PHARMACEUTICALS US-2025DGL00259

PATIENT
  Age: 48 Year
  Sex: Male

DRUGS (27)
  1. CLOZAPINE [Suspect]
     Active Substance: CLOZAPINE
     Indication: Schizoaffective disorder
     Dosage: 75 MG, 1X/DAY
  2. CLOZAPINE [Suspect]
     Active Substance: CLOZAPINE
     Dosage: 125 MG, 1X/DAY ON DAY 7
  3. CLOZAPINE [Suspect]
     Active Substance: CLOZAPINE
     Dosage: 200 MG, 1X/DAY ON DAY 14
  4. CLOZAPINE [Suspect]
     Active Substance: CLOZAPINE
     Dosage: 300 MG, 1X/DAY ON DAY 20
  5. CLOZAPINE [Suspect]
     Active Substance: CLOZAPINE
     Dosage: 25 MG, 1X/DAY; DAY 1 OF SECOND TITRATION
  6. CLOZAPINE [Suspect]
     Active Substance: CLOZAPINE
     Dosage: 50 MG, 1X/DAY; DAY 4:
  7. CLOZAPINE [Suspect]
     Active Substance: CLOZAPINE
     Dosage: 75 MG, 1X/DAY; DAY 5
  8. CLOZAPINE [Suspect]
     Active Substance: CLOZAPINE
     Dosage: 125 MG, 1X/DAY DAY 8
  9. CLOZAPINE [Suspect]
     Active Substance: CLOZAPINE
     Dosage: 175 MG, 1X/DAY, DAY 12
  10. CLOZAPINE [Suspect]
     Active Substance: CLOZAPINE
     Dosage: 225 MG, 1X/DAY, DAY 14
  11. CLOZAPINE [Suspect]
     Active Substance: CLOZAPINE
     Dosage: 250 MG, 1X/DAY, DAY 20
  12. CLOZAPINE [Suspect]
     Active Substance: CLOZAPINE
     Dosage: 275 MG, 1X/DAY, DAY 22
  13. CLOZAPINE [Suspect]
     Active Substance: CLOZAPINE
     Dosage: 300 MG, 1X/DAY, DAY 30
  14. CLOZAPINE [Suspect]
     Active Substance: CLOZAPINE
     Dosage: 350 MG, 1X/DAY, DAY 34
  15. CLOZAPINE [Suspect]
     Active Substance: CLOZAPINE
     Dosage: 400 MG, 1X/DAY, DAY 36
  16. CLOZAPINE [Suspect]
     Active Substance: CLOZAPINE
     Dosage: 500 MG, 1X/DAY, DAY 72
  17. SERTRALINE [Concomitant]
     Active Substance: SERTRALINE HYDROCHLORIDE
     Dosage: 300 MG, 1X/DAY
  18. SERTRALINE [Concomitant]
     Active Substance: SERTRALINE HYDROCHLORIDE
  19. ARIPIPRAZOLE [Concomitant]
     Active Substance: ARIPIPRAZOLE
     Dosage: 5 MG, 1X/DAY
  20. RISPERIDONE [Concomitant]
     Active Substance: RISPERIDONE
     Dosage: 3 MG, 1X/DAY
  21. LORAZEPAM [Concomitant]
     Active Substance: LORAZEPAM
     Dosage: 2 MG, 1X/DAY
  22. VENLAFAXINE [Concomitant]
     Active Substance: VENLAFAXINE HYDROCHLORIDE
     Dosage: 150 MG ON DAY 3
  23. VENLAFAXINE [Concomitant]
     Active Substance: VENLAFAXINE HYDROCHLORIDE
     Dosage: 300 MG, 1X/DAY ON DAY 9
  24. VENLAFAXINE [Concomitant]
     Active Substance: VENLAFAXINE HYDROCHLORIDE
     Dosage: 375 MG, 1X/DAY, DAY 49
  25. VENLAFAXINE [Concomitant]
     Active Substance: VENLAFAXINE HYDROCHLORIDE
     Dosage: 300 MG, 1X/DAY
  26. PALIPERIDONE [Concomitant]
     Active Substance: PALIPERIDONE
  27. PALIPERIDONE [Concomitant]
     Active Substance: PALIPERIDONE
     Dosage: 18 MG ON DAY 19

REACTIONS (1)
  - Dropped head syndrome [Recovered/Resolved]
